FAERS Safety Report 6783816-6 (Version None)
Quarter: 2010Q2

REPORT INFORMATION
  Report Type: 
  Country: None (occurrence: None)
  Receive Date: 20100622
  Receipt Date: 20100614
  Transmission Date: 20101027
  Serious: Yes (Other)
  Sender: FDA-Public Use
  Company Number: US-AMGEN-QUU407244

PATIENT
  Sex: Male
  Weight: 120.8 kg

DRUGS (3)
  1. NPLATE [Suspect]
     Indication: IDIOPATHIC THROMBOCYTOPENIC PURPURA
     Route: 058
     Dates: start: 20081029, end: 20081201
  2. CORTICOSTEROIDS [Concomitant]
     Dates: start: 20081004
  3. PREDNISONE [Concomitant]

REACTIONS (9)
  - AORTIC ARTERIOSCLEROSIS [None]
  - ATELECTASIS [None]
  - BLOOD IRON DECREASED [None]
  - BULLOUS LUNG DISEASE [None]
  - DIVERTICULUM INTESTINAL [None]
  - DRUG INEFFECTIVE [None]
  - MARROW HYPERPLASIA [None]
  - SPINAL OSTEOARTHRITIS [None]
  - SUBCUTANEOUS NODULE [None]
